FAERS Safety Report 16030566 (Version 1)
Quarter: 2019Q1

REPORT INFORMATION
  Report Type: Spontaneous
  Country: US (occurrence: US)
  Receive Date: 20190304
  Receipt Date: 20190304
  Transmission Date: 20190418
  Serious: Yes (Other)
  Sender: FDA-Public Use
  Company Number: US-GLAXOSMITHKLINE-US2019AMR036633

PATIENT
  Age: 57 Year
  Sex: Female
  Weight: 59 kg

DRUGS (3)
  1. ADVAIR HFA [Suspect]
     Active Substance: FLUTICASONE PROPIONATE\SALMETEROL XINAFOATE
     Indication: CHRONIC OBSTRUCTIVE PULMONARY DISEASE
  2. ADVAIR HFA [Suspect]
     Active Substance: FLUTICASONE PROPIONATE\SALMETEROL XINAFOATE
     Indication: ASTHMA
     Dosage: 1 PUFF(S), PRN
     Route: 055
     Dates: start: 2010
  3. ADVAIR HFA [Suspect]
     Active Substance: FLUTICASONE PROPIONATE\SALMETEROL XINAFOATE
     Indication: BRONCHITIS CHRONIC

REACTIONS (9)
  - Seasonal allergy [Unknown]
  - Medication error [Unknown]
  - Visual impairment [Unknown]
  - Inappropriate schedule of product administration [Unknown]
  - Cataract operation [Unknown]
  - Osteoporosis [Unknown]
  - Cataract [Unknown]
  - Productive cough [Unknown]
  - Dyspnoea [Unknown]

NARRATIVE: CASE EVENT DATE: 201512
